FAERS Safety Report 5056221-0 (Version None)
Quarter: 2006Q2

REPORT INFORMATION
  Report Type: 
  Country: None (occurrence: None)
  Receive Date: 20060616
  Receipt Date: 20060113
  Transmission Date: 20061013
  Serious: Yes (Hospitalization)
  Sender: FDA-Public Use
  Company Number: 200610423US

PATIENT
  Age: 39 Year
  Sex: Female

DRUGS (9)
  1. LANTUS [Suspect]
     Indication: DIABETES MELLITUS INSULIN-DEPENDENT
     Dosage: 30 IU QD
     Dates: start: 20051118, end: 20060101
  2. LANTUS [Suspect]
     Indication: DIABETES MELLITUS INSULIN-DEPENDENT
     Dosage: 15 IU QD
     Dates: start: 20060101
  3. HUMALOG [Concomitant]
  4. DOCUSATE SODIUM (COLACE) [Concomitant]
  5. KLONOPIN [Concomitant]
  6. PEPCID [Concomitant]
  7. PROZAC [Concomitant]
  8. RISPERDAL [Concomitant]
  9. METHYLPHENIDATE HYDROCHLORIDE (RITALIN) [Concomitant]

REACTIONS (1)
  - HYPOGLYCAEMIA [None]
